FAERS Safety Report 9165331 (Version 1)
Quarter: 2013Q1

REPORT INFORMATION
  Report Type: Spontaneous
  Country: UA (occurrence: None)
  Receive Date: 20130227
  Receipt Date: 20130227
  Transmission Date: 20140127
  Serious: Yes (Life-Threatening)
  Sender: FDA-Public Use
  Company Number: GPV/UKR/0028021

PATIENT
  Age: 36 Year
  Sex: Male

DRUGS (4)
  1. LEVOLET [Suspect]
     Indication: ANTIBIOTIC THERAPY
     Route: 048
     Dates: start: 20120613
  2. ETHAMBUTOL [Concomitant]
  3. AMICIL [Concomitant]
  4. PAS [Concomitant]

REACTIONS (4)
  - Blood pressure decreased [None]
  - Tachycardia [None]
  - Circulatory collapse [None]
  - Loss of consciousness [None]
